FAERS Safety Report 20179231 (Version 2)
Quarter: 2022Q1

REPORT INFORMATION
  Report Type: Report from Study
  Country: US (occurrence: US)
  Receive Date: 20211214
  Receipt Date: 20220110
  Transmission Date: 20220423
  Serious: Yes (Other)
  Sender: FDA-Public Use
  Company Number: US-MYLANLABS-2021M1002222

PATIENT
  Age: 21 Year
  Sex: Female
  Weight: 52.16 kg

DRUGS (1)
  1. GLATIRAMER ACETATE [Suspect]
     Active Substance: GLATIRAMER ACETATE
     Indication: Relapsing-remitting multiple sclerosis
     Dosage: 40 MILLIGRAM, 3XW
     Route: 058
     Dates: end: 20210927

REACTIONS (5)
  - Multiple sclerosis relapse [Unknown]
  - Wrong technique in product usage process [Unknown]
  - Injection site pain [Unknown]
  - Injection site extravasation [Unknown]
  - Injection site mass [Unknown]

NARRATIVE: CASE EVENT DATE: 20210901
